FAERS Safety Report 11869503 (Version 1)
Quarter: 2015Q4

REPORT INFORMATION
  Report Type: Spontaneous
  Country: US (occurrence: US)
  Receive Date: 20151227
  Receipt Date: 20151227
  Transmission Date: 20160305
  Serious: No
  Sender: FDA-Public Use
  Company Number: US-ASTRAZENECA-2015SF28039

PATIENT
  Age: 61 Year
  Sex: Male
  Weight: 84.4 kg

DRUGS (2)
  1. BYDUREON [Suspect]
     Active Substance: EXENATIDE
     Indication: TYPE 2 DIABETES MELLITUS
     Route: 058
  2. METFORMIN [Concomitant]
     Active Substance: METFORMIN HYDROCHLORIDE
     Indication: TYPE 2 DIABETES MELLITUS

REACTIONS (7)
  - Diarrhoea [Unknown]
  - Injection site pruritus [Unknown]
  - Weight decreased [Unknown]
  - Eructation [Unknown]
  - Injection site nodule [Unknown]
  - Abdominal discomfort [Unknown]
  - Injection site erythema [Unknown]
